FAERS Safety Report 16534276 (Version 2)
Quarter: 2019Q3

REPORT INFORMATION
  Report Type: Spontaneous
  Country: GB (occurrence: GB)
  Receive Date: 20190705
  Receipt Date: 20190710
  Transmission Date: 20191004
  Serious: Yes (Other)
  Sender: FDA-Public Use
  Company Number: GB-VIIV HEALTHCARE LIMITED-GB2019EME118710

PATIENT

DRUGS (1)
  1. TRIUMEQ [Suspect]
     Active Substance: ABACAVIR SULFATE\DOLUTEGRAVIR SODIUM\LAMIVUDINE
     Indication: HIV INFECTION
     Dosage: UNK

REACTIONS (7)
  - Eye pruritus [Recovered/Resolved]
  - Optic neuritis [Recovered/Resolved]
  - Blindness [Recovered/Resolved]
  - Visual field defect [Not Recovered/Not Resolved]
  - Eye pain [Recovered/Resolved]
  - Papilloedema [Recovered/Resolved]
  - Ocular hyperaemia [Recovered/Resolved]
